FAERS Safety Report 21846880 (Version 1)
Quarter: 2023Q1

REPORT INFORMATION
  Report Type: Spontaneous
  Country: FR (occurrence: FR)
  Receive Date: 20230111
  Receipt Date: 20230111
  Transmission Date: 20230417
  Serious: Yes (Other)
  Sender: FDA-Public Use
  Company Number: None

PATIENT
  Age: 57 Year
  Sex: Female
  Weight: 70.8 kg

DRUGS (1)
  1. CARBOPLATIN [Suspect]
     Active Substance: CARBOPLATIN
     Indication: Endometrial cancer recurrent
     Dosage: 651.64 MG IVL OVER 1 HOUR
     Dates: start: 20221005, end: 20221005

REACTIONS (1)
  - Infusion related hypersensitivity reaction [Recovered/Resolved]

NARRATIVE: CASE EVENT DATE: 20221005
